FAERS Safety Report 17440065 (Version 1)
Quarter: 2020Q1

REPORT INFORMATION
  Report Type: Spontaneous
  Country: JP (occurrence: JP)
  Receive Date: 20200220
  Receipt Date: 20200220
  Transmission Date: 20200409
  Serious: Yes (Hospitalization)
  Sender: FDA-Public Use
  Company Number: JP-ELI_LILLY_AND_COMPANY-JP202002005094

PATIENT

DRUGS (2)
  1. CYRAMZA [Suspect]
     Active Substance: RAMUCIRUMAB
     Indication: GASTRIC CANCER
     Route: 042
  2. ABRAXANE [Concomitant]
     Active Substance: PACLITAXEL
     Indication: GASTRIC CANCER
     Route: 042

REACTIONS (2)
  - Impaired healing [Unknown]
  - Cellulitis [Unknown]
